FAERS Safety Report 5936454-9 (Version None)
Quarter: 2008Q4

REPORT INFORMATION
  Report Type: 
  Country: None (occurrence: None)
  Receive Date: 20081030
  Receipt Date: 20081015
  Transmission Date: 20090506
  Serious: Yes (Hospitalization)
  Sender: FDA-Public Use
  Company Number: JP-ABBOTT-08P-087-0482278-00

PATIENT
  Age: 70 Year
  Sex: Female
  Weight: 42 kg

DRUGS (6)
  1. CLARITH TABLETS [Suspect]
     Indication: BRONCHITIS
     Route: 048
     Dates: start: 20080805, end: 20080809
  2. PRANLUKAST [Suspect]
     Indication: ASTHMA
     Route: 048
     Dates: start: 20080805, end: 20080809
  3. ETIZOLAM [Concomitant]
     Indication: DRUG USE FOR UNKNOWN INDICATION
     Route: 048
     Dates: start: 20080805, end: 20080809
  4. ADOAIR [Concomitant]
     Indication: DRUG USE FOR UNKNOWN INDICATION
     Route: 055
     Dates: start: 20080805, end: 20080809
  5. PIPERACILLIN AND TAZOBACTAM [Concomitant]
     Indication: BRONCHITIS
     Dates: start: 20080809, end: 20080809
  6. TEICOPLANIN [Concomitant]
     Indication: BRONCHITIS
     Dates: start: 20080809, end: 20080809

REACTIONS (2)
  - LEUKOPENIA [None]
  - PYREXIA [None]
